FAERS Safety Report 4881641-4 (Version None)
Quarter: 2006Q1

REPORT INFORMATION
  Report Type: 
  Country: None (occurrence: None)
  Receive Date: 20060116
  Receipt Date: 20060111
  Transmission Date: 20060701
  Serious: Yes (Death, Other)
  Sender: FDA-Public Use
  Company Number: PHEH2006US00826

PATIENT
  Age: 43 Year
  Sex: Male

DRUGS (7)
  1. CLOZARIL [Suspect]
     Indication: PSYCHOTIC DISORDER
     Dosage: 400 MG, QD
     Dates: start: 20010101, end: 20051205
  2. VICODIN [Concomitant]
     Indication: PAIN
     Dosage: 10/500 MG, TID PRN
  3. GEODON [Concomitant]
     Indication: PSYCHOTIC DISORDER
     Dosage: 80 MG, BID
  4. MORPHINE SULFATE [Concomitant]
     Indication: PAIN
     Dosage: 15 MG, BID
  5. ZOLOFT [Concomitant]
     Dosage: 50 MG, QD
  6. FUROSEMIDE [Concomitant]
     Dosage: 40 MG, QOD
  7. IBUPROFEN [Concomitant]
     Indication: ARTHRITIS
     Dosage: 200 MG, Q4-6H PRN

REACTIONS (5)
  - CHRONIC OBSTRUCTIVE PULMONARY DISEASE [None]
  - LUNG NEOPLASM MALIGNANT [None]
  - NON-SMALL CELL LUNG CANCER [None]
  - NON-SMALL CELL LUNG CANCER METASTATIC [None]
  - RADIOTHERAPY [None]
